FAERS Safety Report 17931419 (Version 3)
Quarter: 2020Q3

REPORT INFORMATION
  Report Type: Report from Study
  Country: GT (occurrence: GT)
  Receive Date: 20200623
  Receipt Date: 20200710
  Transmission Date: 20201103
  Serious: Yes (Hospitalization, Other)
  Sender: FDA-Public Use
  Company Number: NVSC2020GT173220

PATIENT
  Sex: Female
  Weight: 74.83 kg

DRUGS (6)
  1. EXFORGE HCT [Suspect]
     Active Substance: AMLODIPINE BESYLATE\HYDROCHLOROTHIAZIDE\VALSARTAN
     Indication: HYPERTENSION
     Dosage: 1 DF (10 MG AMLODIPINE BESYLATE, 320 MG VALSARTAN AND 25 MG HYDROCHLOROTHIAZIDE), QD
     Route: 048
     Dates: start: 2016, end: 2018
  2. ATORVASTATIN [Suspect]
     Active Substance: ATORVASTATIN
     Indication: BLOOD TRIGLYCERIDES INCREASED
  3. FUROSEMIDE. [Suspect]
     Active Substance: FUROSEMIDE
     Indication: DIURETIC THERAPY
     Dosage: 0.5 DF, PRN
     Route: 048
  4. ATORVASTATIN [Suspect]
     Active Substance: ATORVASTATIN
     Indication: BLOOD CHOLESTEROL INCREASED
     Dosage: 20 MG, QN
     Route: 065
  5. FUROSEMIDE. [Suspect]
     Active Substance: FUROSEMIDE
     Indication: HYPERTENSION
  6. FUROSEMIDE. [Suspect]
     Active Substance: FUROSEMIDE
     Indication: FLUID INTAKE REDUCED

REACTIONS (6)
  - Wrong technique in product usage process [Unknown]
  - Weight increased [Unknown]
  - Cardiac failure [Recovering/Resolving]
  - Blood triglycerides increased [Unknown]
  - Acute myocardial infarction [Unknown]
  - Blood cholesterol increased [Unknown]

NARRATIVE: CASE EVENT DATE: 2016
